FAERS Safety Report 5348329-7 (Version None)
Quarter: 2007Q2

REPORT INFORMATION
  Report Type: 
  Country: None (occurrence: None)
  Receive Date: 20070606
  Receipt Date: 20070523
  Transmission Date: 20071010
  Serious: Yes (Hospitalization)
  Sender: FDA-Public Use
  Company Number: GR-MERCK-0705USA05207

PATIENT
  Age: 68 Year
  Sex: Female

DRUGS (3)
  1. TIAMATE [Suspect]
     Indication: HYPERTENSION
     Route: 048
  2. ACETAMINOPHEN [Concomitant]
     Route: 065
  3. CLONIDINE [Suspect]
     Indication: HYPERTENSION
     Route: 048

REACTIONS (2)
  - EOSINOPHILIA [None]
  - PLEURAL EFFUSION [None]
